FAERS Safety Report 9119245 (Version 1)
Quarter: 2013Q1

REPORT INFORMATION
  Report Type: Report from Study
  Country: JP (occurrence: JP)
  Receive Date: 20130207
  Receipt Date: 20130207
  Transmission Date: 20140127
  Serious: Yes (Hospitalization)
  Sender: FDA-Public Use
  Company Number: JP-VERTEX PHARMACEUTICALS INC.-2013-001596

PATIENT
  Age: 63 Year
  Sex: Female

DRUGS (6)
  1. VX-950 (TELAPREVIR) [Suspect]
     Indication: CHRONIC HEPATITIS C
     Dosage: 1500 MG, QD
     Route: 048
     Dates: start: 20120706, end: 20120927
  2. REBETOL [Suspect]
     Indication: CHRONIC HEPATITIS C
     Dosage: 400 MG, QD
     Route: 048
     Dates: start: 20120706, end: 20120726
  3. REBETOL [Suspect]
     Dosage: 200 MG, QD
     Route: 048
     Dates: start: 20120727, end: 20121024
  4. PEGINTRON                          /01543001/ [Suspect]
     Indication: CHRONIC HEPATITIS C
     Dosage: 1.25 ?G/KG, QW
     Route: 058
     Dates: start: 20120706, end: 20121019
  5. LOXOPROFEN                         /00890702/ [Concomitant]
     Dosage: 60 MG, PRN
     Route: 048
     Dates: start: 20120706, end: 20121024
  6. MOHRUS [Concomitant]
     Dosage: 30 MG, PRN
     Route: 061
     Dates: start: 20120803

REACTIONS (1)
  - Autoimmune hepatitis [Not Recovered/Not Resolved]
